FAERS Safety Report 17160425 (Version 4)
Quarter: 2020Q1

REPORT INFORMATION
  Report Type: Report from Study
  Country: IT (occurrence: IT)
  Receive Date: 20191216
  Receipt Date: 20200204
  Transmission Date: 20200409
  Serious: Yes (Hospitalization)
  Sender: FDA-Public Use
  Company Number: IT-MYLANLABS-2019M1122959

PATIENT
  Age: 82 Year
  Sex: Female

DRUGS (5)
  1. DICLOFENAC [Suspect]
     Active Substance: DICLOFENAC
     Indication: PAIN
     Dosage: DF, PRN (AS NECESSARY)
     Route: 061
  2. MACROGOL 4000 [Concomitant]
     Active Substance: POLYETHYLENE GLYCOL 4000
     Indication: PRODUCT USED FOR UNKNOWN INDICATION
     Dosage: UNK
     Route: 065
  3. TAPENTADOL [Interacting]
     Active Substance: TAPENTADOL
     Indication: PAIN
     Dosage: 100 MILLIGRAM, QD
     Route: 048
     Dates: start: 20190627
  4. TRIAZOLAM. [Interacting]
     Active Substance: TRIAZOLAM
     Indication: PAIN
     Dosage: 0.25 MILLIGRAM, QD
     Route: 048
  5. TRIAZOLAM. [Interacting]
     Active Substance: TRIAZOLAM
     Dosage: 1 MILLIGRAM, QD
     Route: 048
     Dates: start: 20190627, end: 20190627

REACTIONS (5)
  - Drug interaction [Unknown]
  - Asthenia [Recovering/Resolving]
  - Chest pain [Recovering/Resolving]
  - Dyspnoea [Recovering/Resolving]
  - Ulcer [Recovering/Resolving]

NARRATIVE: CASE EVENT DATE: 20190627
